FAERS Safety Report 18590663 (Version 1)
Quarter: 2020Q4

REPORT INFORMATION
  Report Type: Spontaneous
  Country: DE (occurrence: DE)
  Receive Date: 20201208
  Receipt Date: 20201208
  Transmission Date: 20210114
  Serious: Yes (Death, Other)
  Sender: FDA-Public Use
  Company Number: DE-PFIZER INC-2020476575

PATIENT
  Age: 71 Year
  Sex: Female
  Weight: 107 kg

DRUGS (4)
  1. LINEZOLID. [Suspect]
     Active Substance: LINEZOLID
     Indication: NOSOCOMIAL INFECTION
  2. LINEZOLID. [Suspect]
     Active Substance: LINEZOLID
     Indication: ENTEROCOCCAL INFECTION
     Dosage: UNK
     Route: 065
  3. MEROPENEM. [Concomitant]
     Active Substance: MEROPENEM
     Indication: ENTEROCOCCAL INFECTION
  4. MEROPENEM. [Concomitant]
     Active Substance: MEROPENEM
     Indication: NOSOCOMIAL INFECTION
     Dosage: UNK

REACTIONS (1)
  - Pathogen resistance [Fatal]
